FAERS Safety Report 5873730-2 (Version None)
Quarter: 2008Q3

REPORT INFORMATION
  Report Type: 
  Country: None (occurrence: None)
  Receive Date: 20080908
  Receipt Date: 20080901
  Transmission Date: 20090109
  Serious: Yes (Hospitalization)
  Sender: FDA-Public Use
  Company Number: GB-ROCHE-584129

PATIENT
  Sex: Female
  Weight: 92 kg

DRUGS (10)
  1. ORLISTAT [Suspect]
     Indication: OBESITY
     Route: 048
     Dates: start: 20080618
  2. FOLIC ACID [Concomitant]
     Route: 048
  3. RANITIDINE [Concomitant]
     Route: 048
  4. MIRTAZAPINE [Concomitant]
     Indication: ANTIDEPRESSANT THERAPY
     Dosage: REPORTED AS ORODISPERSIBLE
     Route: 048
  5. DIAZEPAM [Concomitant]
     Indication: NERVOUSNESS
     Route: 048
  6. DHC CONTINUS [Concomitant]
     Indication: PAIN
     Dosage: DOSEAGE REPORTED AS 60MG/ 10 TWO TIMES DAILY
     Route: 048
  7. ALPHOSYL [Concomitant]
     Dosage: SHAMPOO. TAKEN AS NEEDED
  8. SALBUTAMOL [Concomitant]
     Indication: ASTHMA
     Route: 055
  9. SEREVENT [Concomitant]
     Indication: ASTHMA
     Route: 055
  10. NICORETTE [Concomitant]

REACTIONS (1)
  - VIRAL INFECTION [None]
